FAERS Safety Report 9913306 (Version 1)
Quarter: 2014Q1

REPORT INFORMATION
  Report Type: Spontaneous
  Country: SE (occurrence: None)
  Receive Date: 20140212
  Receipt Date: 20140212
  Transmission Date: 20141002
  Serious: Yes (Death)
  Sender: FDA-Public Use
  Company Number: 2014P1000982

PATIENT
  Age: 46 Year
  Sex: Male

DRUGS (7)
  1. CITALOPRAM [Suspect]
  2. ALIMEMAZINE [Suspect]
  3. DEXTROPROPOXYPHENE [Suspect]
  4. MORPHINE [Suspect]
  5. PARACETAMOL [Suspect]
  6. PROMETHAZINE [Suspect]
  7. ZOPICLONE [Suspect]

REACTIONS (1)
  - Poisoning [None]
